FAERS Safety Report 13177168 (Version 2)
Quarter: 2017Q3

REPORT INFORMATION
  Report Type: Report from Study
  Country: US (occurrence: US)
  Receive Date: 20170201
  Receipt Date: 20170731
  Transmission Date: 20171127
  Serious: No
  Sender: FDA-Public Use
  Company Number: US-EXELIXIS-CABO-16007308

PATIENT
  Sex: Female

DRUGS (2)
  1. DEPAKOTE [Concomitant]
     Active Substance: DIVALPROEX SODIUM
  2. CABOMETYX [Suspect]
     Active Substance: CABOZANTINIB S-MALATE
     Indication: NEOPLASM
     Dosage: 60 MG, QD
     Route: 048
     Dates: start: 20160914

REACTIONS (7)
  - Myalgia [Unknown]
  - Palmar-plantar erythrodysaesthesia syndrome [Not Recovered/Not Resolved]
  - Off label use [Unknown]
  - Pallor [Unknown]
  - Fatigue [Unknown]
  - Hair colour changes [Unknown]
  - Diarrhoea [Recovering/Resolving]
